FAERS Safety Report 23482927 (Version 1)
Quarter: 2024Q1

REPORT INFORMATION
  Report Type: Spontaneous
  Country: US (occurrence: None)
  Receive Date: 20240204
  Receipt Date: 20240204
  Transmission Date: 20240409
  Serious: Yes (Other)
  Sender: FDA-Public Use
  Company Number: None

PATIENT
  Age: 50 Year
  Sex: Female
  Weight: 175.5 kg

DRUGS (3)
  1. MOUNJARO [Suspect]
     Active Substance: TIRZEPATIDE
  2. LANTUS [Concomitant]
     Active Substance: INSULIN GLARGINE
  3. Apap mortion [Concomitant]

REACTIONS (3)
  - Pruritus [None]
  - Erythema [None]
  - Pain [None]

NARRATIVE: CASE EVENT DATE: 20240126
